FAERS Safety Report 7480365-7 (Version None)
Quarter: 2011Q2

REPORT INFORMATION
  Report Type: 
  Country: None (occurrence: None)
  Receive Date: 20110512
  Receipt Date: 20110512
  Transmission Date: 20111010
  Serious: Yes (Hospitalization)
  Sender: FDA-Public Use
  Company Number: None

PATIENT
  Sex: Female
  Weight: 63 kg

DRUGS (5)
  1. DOXORUBICIN HYDROCHLORIDE [Suspect]
     Dosage: 99 MG
  2. ANASTROZOLE (ARIMIDEX) [Suspect]
     Dosage: 36 MG
  3. NOLVADEX [Suspect]
     Dosage: 420 MG
  4. AROMASIN [Suspect]
     Dosage: 2800 MG
  5. CYCLOPHOSPHAMIDE [Suspect]
     Dosage: 990 MG

REACTIONS (3)
  - LEUKOPENIA [None]
  - ACUTE MYELOID LEUKAEMIA [None]
  - THROMBOCYTOPENIA [None]
